FAERS Safety Report 5487353-0 (Version None)
Quarter: 2007Q4

REPORT INFORMATION
  Report Type: 
  Country: None (occurrence: None)
  Receive Date: 20071016
  Receipt Date: 20071010
  Transmission Date: 20080405
  Serious: Yes (Death, Hospitalization)
  Sender: FDA-Public Use
  Company Number: US-ROXANE LABORATORIES, INC-2007-BP-22462RO

PATIENT
  Age: 84 Year
  Sex: Female

DRUGS (13)
  1. AZATHIOPRINE [Suspect]
     Indication: PEMPHIGOID
     Route: 048
  2. PREDNISONE [Suspect]
     Indication: PEMPHIGOID
     Route: 048
  3. LEVOTHYROXINE SODIUM [Concomitant]
  4. SPIRONOLACTONE [Concomitant]
  5. WARFARIN SODIUM [Concomitant]
  6. ATORVASTATIN CALCIUM [Concomitant]
  7. DOXYCYCLINE [Concomitant]
  8. LANSOPRAZOLE [Concomitant]
  9. ASPIRIN [Concomitant]
  10. AMPICILLIN AND SULBACTAM [Concomitant]
     Indication: OSTEOMYELITIS
     Route: 042
  11. AMPHOTERICIN B [Concomitant]
     Route: 042
  12. FLUCYTOSINE [Concomitant]
     Route: 048
  13. FLUCONAZOLE [Concomitant]
     Route: 048

REACTIONS (5)
  - AMPUTATION [None]
  - CRYPTOCOCCAL CUTANEOUS INFECTION [None]
  - MENINGITIS [None]
  - OSTEOMYELITIS ACUTE [None]
  - RENAL IMPAIRMENT [None]
